FAERS Safety Report 5043702-9 (Version None)
Quarter: 2006Q3

REPORT INFORMATION
  Report Type: 
  Country: None (occurrence: None)
  Receive Date: 20060706
  Receipt Date: 20060626
  Transmission Date: 20061208
  Serious: Yes (Hospitalization)
  Sender: FDA-Public Use
  Company Number: ESWYE853728JUN06

PATIENT
  Age: 49 Year
  Sex: Female

DRUGS (3)
  1. ENBREL [Suspect]
     Indication: RHEUMATOID ARTHRITIS
     Route: 058
     Dates: start: 20050309, end: 20050317
  2. OMEPRAZOLE [Concomitant]
     Route: 048
     Dates: start: 20050201, end: 20050513
  3. DEFLAZACORT [Concomitant]
     Dosage: UNKNOWN
     Route: 048
     Dates: start: 20050201, end: 20050513

REACTIONS (1)
  - RESPIRATORY FAILURE [None]
